FAERS Safety Report 12640742 (Version 1)
Quarter: 2016Q3

REPORT INFORMATION
  Report Type: Spontaneous
  Country: GB (occurrence: GB)
  Receive Date: 20160810
  Receipt Date: 20160810
  Transmission Date: 20161109
  Serious: Yes (Other)
  Sender: FDA-Public Use
  Company Number: GB-MYLANLABS-2016M1033126

PATIENT

DRUGS (4)
  1. PAMIDRONATE [Suspect]
     Active Substance: PAMIDRONATE DISODIUM
     Indication: OSTEOGENESIS IMPERFECTA
     Dosage: 1 MG/KG/DAY ON 3 CONSECUTIVE DAYS EVERY3 MONTHS
     Route: 042
  2. PAMIDRONATE [Suspect]
     Active Substance: PAMIDRONATE DISODIUM
     Dosage: 1.5MG/KG/DAY ON 2 CONSECUTIVE DAYS EVERY 3 MONTHS
     Route: 042
  3. VITAMIN D                          /00107901/ [Concomitant]
     Active Substance: ERGOCALCIFEROL
     Indication: VITAMIN D DEFICIENCY
     Dosage: 10000 UNITS ONCE DAILY FOR 6 WEEKS IN TWO SEPARATE OCCASION
     Route: 065
  4. MULTIVITAMIN                       /00097801/ [Concomitant]
     Active Substance: VITAMINS
     Indication: PRODUCT USED FOR UNKNOWN INDICATION
     Route: 065

REACTIONS (3)
  - Impaired healing [Not Recovered/Not Resolved]
  - Atypical femur fracture [Not Recovered/Not Resolved]
  - Bone density increased [Not Recovered/Not Resolved]
